FAERS Safety Report 7353965-2 (Version None)
Quarter: 2011Q1

REPORT INFORMATION
  Report Type: 
  Country: None (occurrence: None)
  Receive Date: 20110315
  Receipt Date: 20110301
  Transmission Date: 20110831
  Serious: Yes (Hospitalization, Other)
  Sender: FDA-Public Use
  Company Number: PHEH2009US03889

PATIENT
  Sex: Male

DRUGS (60)
  1. COREG [Concomitant]
  2. CYMBALTA [Concomitant]
  3. LORAZEPAM [Concomitant]
  4. NOVOLOG [Concomitant]
  5. REGLAN [Concomitant]
  6. HYDROCODONE BITARTRATE [Concomitant]
  7. NALOXONE [Concomitant]
  8. PREDNISONE [Concomitant]
  9. VALCYTE [Concomitant]
  10. NPH INSULIN [Concomitant]
  11. VELCADE [Concomitant]
  12. NEURONTIN [Concomitant]
  13. FLEXERIL [Concomitant]
  14. BENAZEPRIL HYDROCHLORIDE [Concomitant]
  15. MORPHINE SULDATE [Concomitant]
  16. TEMAZEPAM [Concomitant]
  17. SULFAMETHOXAZOLE AND TRIMETHOPRIM [Concomitant]
  18. VALACICLOVIR [Concomitant]
  19. DIFLUCAN [Concomitant]
  20. MECLIZINE [Concomitant]
  21. TRIAMCINOLONE [Concomitant]
  22. MELPHALAN [Concomitant]
  23. ENTOCORT EC [Concomitant]
  24. FENTANYL [Concomitant]
  25. HYDROMORPHONE [Concomitant]
  26. MYCOPHENOLIC ACID [Concomitant]
  27. AMBIEN [Concomitant]
  28. VINCRISTINE + ADRIAMYCIN + DEXAMETHASONE [Concomitant]
  29. PENICILLIN VK [Concomitant]
  30. MS CONTIN [Concomitant]
  31. MEDROL [Concomitant]
  32. COUMADIN [Concomitant]
  33. CADUET [Concomitant]
  34. AVALIDE [Concomitant]
  35. ANTIVERT ^PFIZER^ [Concomitant]
  36. TRAZODONE [Concomitant]
  37. TACROLIMUS [Concomitant]
  38. CYCLOSPORINE [Concomitant]
  39. REVLIMID [Concomitant]
  40. ENTOCORT EC [Concomitant]
  41. VALIUM [Concomitant]
  42. PROTONIX [Concomitant]
  43. BACTRIM [Concomitant]
  44. ZITHROMAX [Concomitant]
  45. PERCOCET [Concomitant]
  46. VALTREX [Concomitant]
  47. LANTUS [Concomitant]
  48. METOCLOPRAMIDE HCL [Concomitant]
  49. PANTOPRAZOLE [Concomitant]
  50. FLAGYL [Concomitant]
  51. COMPAZINE [Concomitant]
  52. THALIDOMIDE [Concomitant]
  53. SENNA [Concomitant]
  54. AREDIA [Suspect]
  55. ZOMETA [Suspect]
  56. MAGNESIUM [Concomitant]
  57. IMODIUM MULTI-SYMPTOM RELIEF [Concomitant]
  58. ONDANSETRON [Concomitant]
  59. CLARITIN [Concomitant]
  60. PREVACID [Concomitant]

REACTIONS (56)
  - OSTEORADIONECROSIS [None]
  - PAIN [None]
  - CYTOMEGALOVIRUS INFECTION [None]
  - HYPERLIPIDAEMIA [None]
  - BLOOD MAGNESIUM DECREASED [None]
  - RENAL DISORDER [None]
  - INTERVERTEBRAL DISC DEGENERATION [None]
  - ODYNOPHAGIA [None]
  - DERMATITIS CONTACT [None]
  - ANXIETY [None]
  - IMPAIRED HEALING [None]
  - CANDIDIASIS [None]
  - DEHYDRATION [None]
  - LEFT VENTRICULAR DYSFUNCTION [None]
  - FOREIGN BODY REACTION [None]
  - DIABETES MELLITUS [None]
  - FATIGUE [None]
  - INFLAMMATION [None]
  - DUODENITIS [None]
  - DECREASED INTEREST [None]
  - PAIN IN JAW [None]
  - BONE DISORDER [None]
  - CYST [None]
  - HYPERTENSION [None]
  - GASTROOESOPHAGEAL REFLUX DISEASE [None]
  - DIARRHOEA [None]
  - EJECTION FRACTION [None]
  - GASTRITIS [None]
  - OSTEOLYSIS [None]
  - GENERAL PHYSICAL HEALTH DETERIORATION [None]
  - RASH [None]
  - THROMBOSIS [None]
  - CARDIOMYOPATHY [None]
  - ARTHRALGIA [None]
  - BRONCHITIS [None]
  - DYSPHAGIA [None]
  - OSTEONECROSIS [None]
  - LEFT VENTRICULAR HYPERTROPHY [None]
  - GASTRIC POLYPS [None]
  - HEADACHE [None]
  - OSTEONECROSIS OF JAW [None]
  - PNEUMONIA [None]
  - METASTASES TO BONE MARROW [None]
  - NEUROPATHY PERIPHERAL [None]
  - SLEEP APNOEA SYNDROME [None]
  - EXTRASYSTOLES [None]
  - HYPOXIA [None]
  - HAEMATEMESIS [None]
  - GRAFT VERSUS HOST DISEASE [None]
  - BLOOD CALCIUM INCREASED [None]
  - OSTEOPOROSIS [None]
  - BLOOD SODIUM DECREASED [None]
  - IMPAIRED GASTRIC EMPTYING [None]
  - RENAL FAILURE ACUTE [None]
  - NEOPLASM MALIGNANT [None]
  - PYREXIA [None]
